FAERS Safety Report 22338947 (Version 2)
Quarter: 2024Q3

REPORT INFORMATION
  Report Type: Spontaneous
  Country: CO (occurrence: CO)
  Receive Date: 20230518
  Receipt Date: 20240808
  Transmission Date: 20241017
  Serious: Yes (Death, Other)
  Sender: RANBAXY
  Company Number: CO-SUN PHARMACEUTICAL INDUSTRIES LTD-2023RR-389071

PATIENT
  Age: 74 Year
  Sex: Male

DRUGS (6)
  1. IMATINIB [Suspect]
     Active Substance: IMATINIB
     Indication: Gastrointestinal cancer metastatic
     Dosage: UNK
     Route: 065
  2. SUNITINIB [Suspect]
     Active Substance: SUNITINIB
     Indication: Neoplasm progression
     Dosage: IN TOTAL 6 CYCLES OF 50 MG/DAY DURING 4 WEEKS, FOLLOWED BY 2 WEEKS AT REST
     Route: 065
     Dates: start: 201808, end: 202005
  3. AMLODIPINE [Concomitant]
     Active Substance: AMLODIPINE BESYLATE
     Indication: Hypertension
     Dosage: 10 MILLIGRAM, DAILY
     Route: 065
  4. METOPROLOL [Concomitant]
     Active Substance: METOPROLOL
     Indication: Hypertension
     Dosage: 100 MILLIGRAM, DAILY
     Route: 065
  5. FUROSEMIDE [Concomitant]
     Active Substance: FUROSEMIDE
     Indication: Hypertension
     Dosage: 40 MILLIGRAM, DAILY
     Route: 065
  6. PRAZOSIN [Concomitant]
     Active Substance: PRAZOSIN
     Indication: Hypertension
     Dosage: 6 MILLIGRAM, UNK
     Route: 065

REACTIONS (3)
  - Thrombotic microangiopathy [Recovered/Resolved]
  - Nephrotic syndrome [Recovered/Resolved]
  - Disease progression [Fatal]
